FAERS Safety Report 5048584-7 (Version None)
Quarter: 2006Q3

REPORT INFORMATION
  Report Type: 
  Country: None (occurrence: None)
  Receive Date: 20060705
  Receipt Date: 20060620
  Transmission Date: 20061208
  Serious: Yes (Other)
  Sender: FDA-Public Use
  Company Number: HQWYE336621JUN06

PATIENT
  Age: 67 Year
  Sex: Female

DRUGS (8)
  1. RALOXIFENE, CONTROL FOR BAZEDOXIFENE ACETATE (RALOXIFENE, CONTROL FOR [Suspect]
     Indication: OSTEOPOROSIS
     Dosage: 60 MG 1X PER 1 DAY
     Route: 048
     Dates: start: 20030805, end: 20060619
  2. ORPHENADRINE CITRATE [Concomitant]
  3. DIPYRONE (METAMIZOLE SODIUM) [Concomitant]
  4. CAFFEINE [Concomitant]
  5. DICLOFENAC SODIUM [Concomitant]
  6. ACETYLSALICYLIC ACID SRT [Concomitant]
  7. HYDROCHLOROTHIAZIDE [Concomitant]
  8. ALUMINUM HYDROXIDE GEL [Concomitant]

REACTIONS (12)
  - ABDOMINAL PAIN [None]
  - DEPRESSED MOOD [None]
  - FACIAL PALSY [None]
  - FATIGUE [None]
  - HEADACHE [None]
  - ILL-DEFINED DISORDER [None]
  - INSOMNIA [None]
  - NAUSEA [None]
  - OEDEMA PERIPHERAL [None]
  - POLLAKIURIA [None]
  - PRURITUS GENERALISED [None]
  - TACHYCARDIA [None]
